FAERS Safety Report 5924587-2 (Version None)
Quarter: 2008Q3

REPORT INFORMATION
  Report Type: 
  Country: None (occurrence: None)
  Receive Date: 20080909
  Receipt Date: 20080317
  Transmission Date: 20090109
  Serious: Yes (Death)
  Sender: FDA-Public Use
  Company Number: 163-20785-08021250

PATIENT
  Age: 74 Year
  Sex: Male

DRUGS (8)
  1. THALOMID [Suspect]
     Indication: MULTIPLE MYELOMA
     Dosage: 50 MG, DAILY X28 DAYS, ORAL ; 100 MG, 2 IN 1 D, ORAL
     Route: 048
     Dates: start: 20061107, end: 20061101
  2. THALOMID [Suspect]
     Indication: MULTIPLE MYELOMA
     Dosage: 50 MG, DAILY X28 DAYS, ORAL ; 100 MG, 2 IN 1 D, ORAL
     Route: 048
     Dates: start: 20070602, end: 20080101
  3. ACYCLOVIR [Concomitant]
  4. CLOTRIMAZOLE [Concomitant]
  5. LASIX [Concomitant]
  6. NORVASC [Concomitant]
  7. OMEPRAZOLE [Concomitant]
  8. KIONEX (SODIUM POLYSTYRENE SULFONATE) [Concomitant]

REACTIONS (2)
  - ASTHENIA [None]
  - RENAL FAILURE [None]
